FAERS Safety Report 5099881-0 (Version None)
Quarter: 2006Q3

REPORT INFORMATION
  Report Type: 
  Country: None (occurrence: None)
  Receive Date: 20060906
  Receipt Date: 20060906
  Transmission Date: 20061208
  Serious: Yes (Hospitalization)
  Sender: FDA-Public Use
  Company Number: None

PATIENT
  Age: 23 Year
  Sex: Female
  Weight: 73 kg

DRUGS (1)
  1. ORTHO EVRA [Suspect]
     Indication: POLYCYSTIC OVARIES
     Dosage: 1 PATCH   ONCE WEEKLY   TRANSDERMAL
     Route: 062

REACTIONS (1)
  - PULMONARY EMBOLISM [None]
